FAERS Safety Report 25529939 (Version 1)
Quarter: 2025Q3

REPORT INFORMATION
  Report Type: Spontaneous
  Country: GB (occurrence: GB)
  Receive Date: 20250708
  Receipt Date: 20250708
  Transmission Date: 20251020
  Serious: Yes (Other)
  Sender: TEVA
  Company Number: None

PATIENT
  Age: 55 Year
  Sex: Female
  Weight: 100 kg

DRUGS (1)
  1. FLUCONAZOLE [Suspect]
     Active Substance: FLUCONAZOLE
     Indication: Adverse drug reaction
     Route: 065
     Dates: start: 20250410, end: 20250521

REACTIONS (4)
  - Brain fog [Recovering/Resolving]
  - Lethargy [Recovered/Resolved]
  - Abnormal weight gain [Recovering/Resolving]
  - Electrocardiogram ST segment depression [Recovered/Resolved]

NARRATIVE: CASE EVENT DATE: 20250410
